FAERS Safety Report 21075982 (Version 1)
Quarter: 2022Q3

REPORT INFORMATION
  Report Type: Spontaneous
  Country: US (occurrence: US)
  Receive Date: 20220713
  Receipt Date: 20220713
  Transmission Date: 20221027
  Serious: Yes (Other)
  Sender: FDA-Public Use
  Company Number: US-FreseniusKabi-FK202209598

PATIENT
  Age: 35 Year
  Sex: Male

DRUGS (2)
  1. PROPOFOL [Suspect]
     Active Substance: PROPOFOL
     Indication: Cholecystectomy
     Dosage: 180 MG ON DAY 1; 20MG ON DAY 2; 1070 MG ON DAY 3; 1430 MG ON DAY 4; 1680 MG ON DAY 5; 1440 MG ON DAY
     Route: 065
  2. PROPOFOL [Suspect]
     Active Substance: PROPOFOL
     Indication: Sedation

REACTIONS (1)
  - Brugada syndrome [Recovered/Resolved]
